FAERS Safety Report 4688230-5 (Version None)
Quarter: 2005Q2

REPORT INFORMATION
  Report Type: 
  Country: None (occurrence: None)
  Receive Date: 20050609
  Receipt Date: 20050603
  Transmission Date: 20051028
  Serious: Yes (Hospitalization, Other)
  Sender: FDA-Public Use
  Company Number: KII-2005-0016866

PATIENT
  Age: 42 Year
  Sex: Male

DRUGS (2)
  1. MORPHINE SULFATE [Suspect]
     Dosage: ORAL
     Route: 048
  2. HEROIN (DIAMORPHINE) [Suspect]
     Dosage: SEE TEXT

REACTIONS (4)
  - COMA [None]
  - DRUG ABUSER [None]
  - HYPOTENSION [None]
  - MIOSIS [None]
